FAERS Safety Report 24373264 (Version 2)
Quarter: 2024Q4

REPORT INFORMATION
  Report Type: Spontaneous
  Country: US (occurrence: US)
  Receive Date: 20240927
  Receipt Date: 20241004
  Transmission Date: 20250115
  Serious: Yes (Life-Threatening, Hospitalization, Other)
  Sender: PFIZER
  Company Number: US-PFIZER INC-PV202400125065

PATIENT
  Age: 66 Year
  Sex: Male

DRUGS (6)
  1. METHOTREXATE SODIUM [Suspect]
     Active Substance: METHOTREXATE SODIUM
     Indication: B-cell type acute leukaemia
     Dosage: UNK, CYCLIC
  2. VINCRISTINE SULFATE [Suspect]
     Active Substance: VINCRISTINE SULFATE
     Indication: B-cell type acute leukaemia
     Dosage: UNK, CYCLIC
  3. DOXORUBICIN HYDROCHLORIDE [Suspect]
     Active Substance: DOXORUBICIN HYDROCHLORIDE
     Indication: B-cell type acute leukaemia
     Dosage: UNK, CYCLIC
  4. RITUXIMAB [Suspect]
     Active Substance: RITUXIMAB
     Indication: B-cell type acute leukaemia
     Dosage: UNK, CYCLIC
  5. CYCLOPHOSPHAMIDE [Suspect]
     Active Substance: CYCLOPHOSPHAMIDE
     Indication: B-cell type acute leukaemia
     Dosage: UNK, CYCLIC
  6. DEXAMETHASONE [Suspect]
     Active Substance: DEXAMETHASONE
     Indication: B-cell type acute leukaemia
     Dosage: UNK, CYCLIC

REACTIONS (7)
  - Tracheobronchitis bacterial [Recovering/Resolving]
  - Aspergillus infection [Recovering/Resolving]
  - Septic shock [Recovered/Resolved]
  - Acute respiratory failure [Unknown]
  - Pancytopenia [Recovered/Resolved]
  - Febrile neutropenia [Recovered/Resolved]
  - Streptococcal bacteraemia [Recovered/Resolved]
